FAERS Safety Report 11362778 (Version 1)
Quarter: 2015Q3

REPORT INFORMATION
  Report Type: Spontaneous
  Country: US (occurrence: US)
  Receive Date: 20150810
  Receipt Date: 20150810
  Transmission Date: 20151125
  Serious: Yes (Death, Other)
  Sender: FDA-Public Use
  Company Number: US-GILEAD-2015-0166917

PATIENT
  Age: 40 Year
  Sex: Male

DRUGS (1)
  1. ZYDELIG [Suspect]
     Active Substance: IDELALISIB
     Indication: PRODUCT USED FOR UNKNOWN INDICATION
     Dosage: UNK, RECEIVED FOR 5-6 DAYS
     Route: 065
     Dates: start: 201507

REACTIONS (2)
  - Hepatic failure [Fatal]
  - Renal failure [Unknown]

NARRATIVE: CASE EVENT DATE: 201507
